FAERS Safety Report 8500483-1 (Version None)
Quarter: 2012Q3

REPORT INFORMATION
  Report Type: 
  Country: None (occurrence: None)
  Receive Date: 20120710
  Receipt Date: 20120703
  Transmission Date: 20120928
  Serious: Yes (Other)
  Sender: FDA-Public Use
  Company Number: US-AMGEN-USASP2012033963

PATIENT
  Age: 63 Year
  Sex: Female

DRUGS (5)
  1. TYLENOL (CAPLET) [Concomitant]
  2. VITAMIN D [Concomitant]
  3. PROLIA [Suspect]
     Indication: OSTEOPOROSIS POSTMENOPAUSAL
     Dates: start: 20110601
  4. CALCIUM [Concomitant]
  5. ALLEGRA-D 12 HOUR [Concomitant]

REACTIONS (1)
  - DENTAL EXAMINATION ABNORMAL [None]
